FAERS Safety Report 23932805 (Version 2)
Quarter: 2024Q3

REPORT INFORMATION
  Report Type: Spontaneous
  Country: US (occurrence: US)
  Receive Date: 20240603
  Receipt Date: 20240705
  Transmission Date: 20241017
  Serious: Yes (Other)
  Sender: BRISTOL MYERS SQUIBB
  Company Number: US-BRISTOL-MYERS SQUIBB COMPANY-2024-088052

PATIENT
  Age: 63 Year
  Sex: Female
  Weight: 84.37 kg

DRUGS (4)
  1. POMALYST [Suspect]
     Active Substance: POMALIDOMIDE
     Indication: Plasma cell myeloma
  2. POMALYST [Suspect]
     Active Substance: POMALIDOMIDE
     Dosage: FREQUENCY: 21
     Dates: start: 20220703
  3. POMALYST [Suspect]
     Active Substance: POMALIDOMIDE
     Route: 048
     Dates: start: 2024
  4. CLOBETASOL PROPIONATE [Concomitant]
     Active Substance: CLOBETASOL PROPIONATE
     Indication: Product used for unknown indication

REACTIONS (3)
  - Neutropenia [Recovering/Resolving]
  - Bone pain [Recovered/Resolved]
  - Dermatitis contact [Recovering/Resolving]

NARRATIVE: CASE EVENT DATE: 20240501
